FAERS Safety Report 6660398-0 (Version None)
Quarter: 2010Q1

REPORT INFORMATION
  Report Type: 
  Country: None (occurrence: None)
  Receive Date: 20100330
  Receipt Date: 20100330
  Transmission Date: 20100710
  Serious: Yes (Other)
  Sender: FDA-Public Use
  Company Number: None

PATIENT
  Sex: Female
  Weight: 56.6996 kg

DRUGS (2)
  1. MELOXICAM [Suspect]
     Indication: GOUT
     Dosage: MELOXICAN 15MG TAB
     Dates: start: 20100311
  2. INDOMETHACIN 50MG CAP [Suspect]
     Indication: PAIN IN EXTREMITY
     Dosage: 50 MG CAP 1 3X DAY
     Dates: start: 20100311

REACTIONS (7)
  - ABDOMINAL PAIN UPPER [None]
  - DIARRHOEA [None]
  - DYSARTHRIA [None]
  - HALLUCINATION [None]
  - HEADACHE [None]
  - HEART RATE INCREASED [None]
  - MOOD ALTERED [None]
